FAERS Safety Report 12841676 (Version 3)
Quarter: 2018Q4

REPORT INFORMATION
  Report Type: Spontaneous
  Country: FR (occurrence: FR)
  Receive Date: 20161012
  Receipt Date: 20181227
  Transmission Date: 20190204
  Serious: Yes (Disabling)
  Sender: FDA-Public Use
  Company Number: FR-SA-2016SA182856

PATIENT
  Age: 41 Year
  Sex: Female
  Weight: 74 kg

DRUGS (27)
  1. SODIUM CHLORIDE. [Concomitant]
     Active Substance: SODIUM CHLORIDE
     Dosage: 0,9% 250 ML
     Route: 042
     Dates: start: 20111207, end: 20111207
  2. FLUOROURACIL. [Suspect]
     Active Substance: FLUOROURACIL
     Indication: PRODUCT USED FOR UNKNOWN INDICATION
     Dosage: 900 MG, QCY
     Route: 042
     Dates: start: 20111026, end: 20111026
  3. SODIUM CHLORIDE. [Concomitant]
     Active Substance: SODIUM CHLORIDE
     Dosage: 0,9% 50 ML
     Route: 042
     Dates: start: 20120125, end: 20120125
  4. SODIUM CHLORIDE. [Concomitant]
     Active Substance: SODIUM CHLORIDE
     Dosage: 0,9% 108 ML
     Route: 042
     Dates: start: 20120215, end: 20120215
  5. TAXOTERE [Suspect]
     Active Substance: DOCETAXEL
     Indication: BREAST CANCER
     Dosage: UNK UNK,QCY
     Route: 042
     Dates: end: 20160216
  6. CYCLOPHOSPHAMIDE. [Suspect]
     Active Substance: CYCLOPHOSPHAMIDE
     Dosage: 900 MG, QCY
     Route: 042
     Dates: start: 20111116, end: 20111116
  7. EPIRUBICIN [Suspect]
     Active Substance: EPIRUBICIN
     Dosage: 180 UNK
     Dates: start: 20111207, end: 20111207
  8. ZOPHREN [ONDANSETRON HYDROCHLORIDE] [Concomitant]
     Active Substance: ONDANSETRON
     Dosage: 8 MG
     Route: 042
     Dates: start: 20111026, end: 20111026
  9. SODIUM CHLORIDE. [Concomitant]
     Active Substance: SODIUM CHLORIDE
     Dosage: 0,9% 250 ML
     Route: 042
     Dates: start: 20111116, end: 20111116
  10. TAXOTERE [Suspect]
     Active Substance: DOCETAXEL
     Dosage: 180 MG,QCY
     Route: 042
     Dates: start: 20120104, end: 20120104
  11. FLUOROURACIL. [Suspect]
     Active Substance: FLUOROURACIL
     Dosage: 900 UNK
     Route: 042
     Dates: start: 20111116, end: 20111116
  12. EPIRUBICIN [Suspect]
     Active Substance: EPIRUBICIN
     Indication: PRODUCT USED FOR UNKNOWN INDICATION
     Dosage: 180 MG, QCY
     Route: 042
     Dates: start: 20111026, end: 20111026
  13. TAMOXIFEN CITRATE. [Suspect]
     Active Substance: TAMOXIFEN CITRATE
     Indication: BREAST CANCER
     Dosage: UNK UNK, UNK
     Route: 065
     Dates: start: 20120501
  14. NOLVADEX [Suspect]
     Active Substance: TAMOXIFEN CITRATE
     Indication: BREAST CANCER
     Dosage: UNK
     Route: 065
     Dates: start: 201205
  15. ZOPHREN [ONDANSETRON HYDROCHLORIDE] [Concomitant]
     Active Substance: ONDANSETRON
     Dosage: 8 UNK
     Route: 042
     Dates: start: 20111116, end: 20111116
  16. ZOPHREN [ONDANSETRON HYDROCHLORIDE] [Concomitant]
     Active Substance: ONDANSETRON
     Dosage: 8 UNK
     Route: 042
     Dates: start: 20120104, end: 20120104
  17. ZOPHREN [ONDANSETRON HYDROCHLORIDE] [Concomitant]
     Active Substance: ONDANSETRON
     Dosage: 8 UNK
     Route: 042
     Dates: start: 20120215, end: 20120215
  18. TAXOTERE [Suspect]
     Active Substance: DOCETAXEL
     Dosage: 180 MG,QCY
     Route: 042
     Dates: start: 20120215, end: 20120215
  19. SODIUM CHLORIDE. [Concomitant]
     Active Substance: SODIUM CHLORIDE
     Dosage: 0,9% 250 ML
     Route: 042
     Dates: start: 20111126, end: 20111126
  20. SODIUM CHLORIDE. [Concomitant]
     Active Substance: SODIUM CHLORIDE
     Dosage: 0,9% 150 ML
     Route: 042
     Dates: start: 20120104, end: 20120104
  21. TAXOTERE [Suspect]
     Active Substance: DOCETAXEL
     Dosage: 180 MG,QCY
     Route: 042
     Dates: start: 20120125, end: 20120125
  22. ZOPHREN [ONDANSETRON HYDROCHLORIDE] [Concomitant]
     Active Substance: ONDANSETRON
     Dosage: 8 UNK
     Route: 042
     Dates: start: 20120125, end: 20120125
  23. CYCLOPHOSPHAMIDE. [Suspect]
     Active Substance: CYCLOPHOSPHAMIDE
     Indication: PRODUCT USED FOR UNKNOWN INDICATION
     Dosage: 900 MG, QCY
     Route: 042
     Dates: start: 20111026, end: 20111026
  24. CYCLOPHOSPHAMIDE. [Suspect]
     Active Substance: CYCLOPHOSPHAMIDE
     Dosage: 900 MG, QCY
     Route: 042
     Dates: start: 20111207, end: 20111207
  25. FLUOROURACIL. [Suspect]
     Active Substance: FLUOROURACIL
     Dosage: 900 UNK
     Route: 042
     Dates: start: 20111207, end: 20111207
  26. EPIRUBICIN [Suspect]
     Active Substance: EPIRUBICIN
     Dosage: 180 UNK
     Dates: start: 20111116, end: 20111116
  27. ZOPHREN [ONDANSETRON HYDROCHLORIDE] [Concomitant]
     Active Substance: ONDANSETRON
     Dosage: 8 UNK
     Route: 042
     Dates: start: 20111207, end: 20111207

REACTIONS (26)
  - Hallucination [Not Recovered/Not Resolved]
  - Tinnitus [Not Recovered/Not Resolved]
  - Muscle spasms [Unknown]
  - Dysstasia [Not Recovered/Not Resolved]
  - Hot flush [Not Recovered/Not Resolved]
  - Tetany [Not Recovered/Not Resolved]
  - Neuropathy peripheral [Not Recovered/Not Resolved]
  - Fatigue [Not Recovered/Not Resolved]
  - Radiation neuropathy [Not Recovered/Not Resolved]
  - Depression [Not Recovered/Not Resolved]
  - Disturbance in attention [Not Recovered/Not Resolved]
  - Neuralgia [Not Recovered/Not Resolved]
  - Facial pain [Not Recovered/Not Resolved]
  - Gait disturbance [Not Recovered/Not Resolved]
  - Pain [Not Recovered/Not Resolved]
  - Insomnia [Not Recovered/Not Resolved]
  - Visual impairment [Not Recovered/Not Resolved]
  - Neuromuscular pain [Not Recovered/Not Resolved]
  - Quality of life decreased [Not Recovered/Not Resolved]
  - Myalgia [Not Recovered/Not Resolved]
  - Emotional disorder [Not Recovered/Not Resolved]
  - Cognitive disorder [Not Recovered/Not Resolved]
  - Muscle contracture [Not Recovered/Not Resolved]
  - Pain in extremity [Not Recovered/Not Resolved]
  - Arthralgia [Unknown]
  - Impaired work ability [Not Recovered/Not Resolved]

NARRATIVE: CASE EVENT DATE: 2012
